FAERS Safety Report 8722274 (Version 2)
Quarter: 2012Q4

REPORT INFORMATION
  Report Type: 
  Country: US (occurrence: US)
  Receive Date: 20120814
  Receipt Date: 20120829
  Transmission Date: 20130627
  Serious: Yes (Other)
  Sender: FDA-Public Use
  Company Number: US-AMGEN-USASP2012043435

PATIENT
  Age: 58 Year
  Sex: Female
  Weight: 62.59 kg

DRUGS (6)
  1. PROLIA [Suspect]
     Indication: OSTEOPOROSIS POSTMENOPAUSAL
     Dosage: 60 mg, q6mo
     Route: 058
     Dates: start: 20101206, end: 20120702
  2. PROLIA [Suspect]
     Dosage: 60 mg, q6mo
     Dates: start: 20110607
  3. PROLIA [Suspect]
     Dosage: 60 mg, q6mo
     Route: 058
     Dates: start: 20111229
  4. PROLIA [Suspect]
     Dosage: 60 mg, q6mo
     Route: 058
     Dates: start: 20120702, end: 20120702
  5. FISH OIL [Concomitant]
     Dosage: UNK
  6. MAXALT [Concomitant]
     Indication: MIGRAINE
     Dosage: UNK UNK, prn

REACTIONS (13)
  - Anaphylactic shock [Recovering/Resolving]
  - Dyspnoea [Recovering/Resolving]
  - Throat tightness [Recovering/Resolving]
  - Lip swelling [Recovered/Resolved]
  - Influenza like illness [Recovering/Resolving]
  - Eye pruritus [Recovering/Resolving]
  - Lacrimation increased [Recovering/Resolving]
  - Urticaria [Recovered/Resolved]
  - Blood pressure decreased [Recovering/Resolving]
  - Dizziness [Recovering/Resolving]
  - Mobility decreased [Recovering/Resolving]
  - Burning sensation [Recovering/Resolving]
  - Malaise [Recovering/Resolving]
